FAERS Safety Report 20457707 (Version 4)
Quarter: 2022Q2

REPORT INFORMATION
  Report Type: Report from Study
  Country: US (occurrence: US)
  Receive Date: 20220210
  Receipt Date: 20220523
  Transmission Date: 20220721
  Serious: Yes (Hospitalization, Other)
  Sender: FDA-Public Use
  Company Number: US-NOVARTISPH-NVSC2022US029313

PATIENT
  Sex: Male

DRUGS (3)
  1. ADAKVEO [Suspect]
     Active Substance: CRIZANLIZUMAB-TMCA
     Indication: Sickle cell disease
     Dosage: UNK, QMO
     Route: 042
  2. ADAKVEO [Suspect]
     Active Substance: CRIZANLIZUMAB-TMCA
     Dosage: 4 DOSAGE FORM (4 INFUSIONS, TOTAL)
     Route: 042
     Dates: start: 20200408, end: 20200408
  3. ADAKVEO [Suspect]
     Active Substance: CRIZANLIZUMAB-TMCA
     Dosage: 4 DOSAGE FORM (4 INFUSIONS, TOTAL)
     Route: 042
     Dates: start: 20200821, end: 20200821

REACTIONS (5)
  - Drug ineffective [Unknown]
  - Malaise [Unknown]
  - Staphylococcal sepsis [Unknown]
  - Device related infection [Unknown]
  - Anaemia [Unknown]
